FAERS Safety Report 4993564-0 (Version None)
Quarter: 2006Q2

REPORT INFORMATION
  Report Type: 
  Country: None (occurrence: None)
  Receive Date: 20060505
  Receipt Date: 20060424
  Transmission Date: 20061013
  Serious: Yes (Hospitalization)
  Sender: FDA-Public Use
  Company Number: FR-GILEAD-2006-0009498

PATIENT
  Age: 40 Year
  Sex: Male

DRUGS (6)
  1. VIREAD [Suspect]
     Route: 048
     Dates: start: 20020930
  2. ZIAGEN [Concomitant]
     Dates: start: 20000320
  3. NORVIR [Concomitant]
     Dates: start: 20000320
  4. SUSTIVA [Concomitant]
     Dates: start: 20000320
  5. EPIVIR [Concomitant]
     Dates: start: 20031118
  6. TELZIR [Concomitant]
     Dates: start: 20041202

REACTIONS (4)
  - BLOOD CREATININE INCREASED [None]
  - NEPHROLITHIASIS [None]
  - PROTEINURIA [None]
  - URINARY TRACT INFECTION [None]
